FAERS Safety Report 5934384-X (Version None)
Quarter: 2008Q4

REPORT INFORMATION
  Report Type: 
  Country: None (occurrence: None)
  Receive Date: 20081029
  Receipt Date: 20081024
  Transmission Date: 20090506
  Serious: Yes (Death, Other)
  Sender: FDA-Public Use
  Company Number: PHHY2008SI25840

PATIENT
  Sex: Male

DRUGS (4)
  1. LESCOL XL [Suspect]
     Dosage: UNK
  2. ASPIRIN [Concomitant]
     Dosage: 100 MG
  3. ENAP [Concomitant]
     Dosage: 20 MG
  4. DILATREND [Concomitant]
     Dosage: 2 X 25 MG

REACTIONS (3)
  - CARDIAC DISORDER [None]
  - DEATH [None]
  - PERCUTANEOUS CORONARY INTERVENTION [None]
